FAERS Safety Report 16989292 (Version 1)
Quarter: 2019Q4

REPORT INFORMATION
  Report Type: Spontaneous
  Country: US (occurrence: US)
  Receive Date: 20190919
  Receipt Date: 20190919
  Transmission Date: 20200122
  Serious: No
  Sender: FDA-Public Use
  Company Number: None

PATIENT
  Age: 77 Year
  Sex: Male
  Weight: 75.3 kg

DRUGS (10)
  1. METHYLCELLULOSE FIBER CAPLETS [Concomitant]
  2. PROBIOTIC [Concomitant]
     Active Substance: PROBIOTICS NOS
  3. METAGENICS, HEMP OIL BROAD SPECTRUM HEMP EXTRACT, 30ML BOTTLE WITH A 1 [Suspect]
     Active Substance: CANNABIDIOL\CANNABIS SATIVA SEED OIL
     Indication: MUSCULOSKELETAL PAIN
     Dosage: ?          QUANTITY:75 MG MILLIGRAM(S);?
     Route: 048
     Dates: start: 20190822, end: 20190911
  4. AMOXICILLIN. [Concomitant]
     Active Substance: AMOXICILLIN
  5. METAGENICS, HEMP OIL BROAD SPECTRUM HEMP EXTRACT, 30ML BOTTLE WITH A 1 [Suspect]
     Active Substance: CANNABIDIOL\CANNABIS SATIVA SEED OIL
     Indication: ARTHRITIS
     Dosage: ?          QUANTITY:75 MG MILLIGRAM(S);?
     Route: 048
     Dates: start: 20190822, end: 20190911
  6. HYDROCHLOROTHIAZIDE. [Concomitant]
     Active Substance: HYDROCHLOROTHIAZIDE
  7. LOSARTAN POTASSIUM. [Concomitant]
     Active Substance: LOSARTAN POTASSIUM
  8. JARROW FORMULA [Concomitant]
  9. JARRO-DOPHILUS EPS [Concomitant]
  10. CITRUCEL [Concomitant]
     Active Substance: METHYLCELLULOSE (4000 MPA.S)

REACTIONS (3)
  - Head injury [None]
  - Fall [None]
  - Dizziness [None]

NARRATIVE: CASE EVENT DATE: 20190911
